FAERS Safety Report 15594714 (Version 3)
Quarter: 2020Q1

REPORT INFORMATION
  Report Type: Spontaneous
  Country: US (occurrence: US)
  Receive Date: 20181106
  Receipt Date: 20200227
  Transmission Date: 20200409
  Serious: No
  Sender: FDA-Public Use
  Company Number: US-SA-2018SA303816

PATIENT
  Age: 22 Year
  Sex: Female

DRUGS (1)
  1. DUPIXENT [Suspect]
     Active Substance: DUPILUMAB
     Route: 058

REACTIONS (16)
  - Periorbital swelling [Unknown]
  - Dry skin [Recovered/Resolved]
  - Lacrimation increased [Unknown]
  - Skin striae [Unknown]
  - Scratch [Unknown]
  - Eye pruritus [Unknown]
  - Skin exfoliation [Recovered/Resolved]
  - Condition aggravated [Unknown]
  - Skin swelling [Unknown]
  - Eczema [Unknown]
  - Ocular hyperaemia [Unknown]
  - Erythema [Unknown]
  - Injection site pain [Unknown]
  - Eye swelling [Unknown]
  - Skin indentation [Unknown]
  - Alopecia [Unknown]
